FAERS Safety Report 6974873-2 (Version None)
Quarter: 2010Q3

REPORT INFORMATION
  Report Type: 
  Country: None (occurrence: None)
  Receive Date: 20100909
  Receipt Date: 20090508
  Transmission Date: 20110219
  Serious: No
  Sender: FDA-Public Use
  Company Number: US-WYE-H07245408

PATIENT
  Sex: Male
  Weight: 72.64 kg

DRUGS (3)
  1. PRISTIQ [Suspect]
     Indication: DEPRESSION
     Route: 048
     Dates: start: 20080801, end: 20080101
  2. PRISTIQ [Suspect]
     Route: 048
     Dates: start: 20080101, end: 20080101
  3. AMBIEN [Concomitant]

REACTIONS (6)
  - CHILLS [None]
  - CRYING [None]
  - DRUG INEFFECTIVE [None]
  - DRUG WITHDRAWAL SYNDROME [None]
  - HYPERHIDROSIS [None]
  - TREMOR [None]
